APPROVED DRUG PRODUCT: PROLOPRIM
Active Ingredient: TRIMETHOPRIM
Strength: 200MG
Dosage Form/Route: TABLET;ORAL
Application: N017943 | Product #003
Applicant: MONARCH PHARMACEUTICALS INC
Approved: Jul 14, 1982 | RLD: No | RS: No | Type: DISCN